FAERS Safety Report 26174259 (Version 1)
Quarter: 2025Q4

REPORT INFORMATION
  Report Type: Spontaneous
  Country: US (occurrence: US)
  Receive Date: 20251218
  Receipt Date: 20251218
  Transmission Date: 20260117
  Serious: No
  Sender: ALVOGEN
  Company Number: US-ALVOGEN-2025098515

PATIENT
  Age: 61 Year

DRUGS (1)
  1. FENTANYL [Suspect]
     Active Substance: FENTANYL
     Indication: Product used for unknown indication
     Dosage: 100 MCG/HR GENERIC FOR DURAGESIC 100?PICKED UP ON 01-AUG-2025
     Dates: start: 20250801

REACTIONS (5)
  - Drug ineffective [Unknown]
  - Device adhesion issue [Unknown]
  - Device malfunction [Unknown]
  - Wrong technique in product usage process [Unknown]
  - Device defective [Unknown]

NARRATIVE: CASE EVENT DATE: 20250801
